FAERS Safety Report 15761148 (Version 6)
Quarter: 2020Q4

REPORT INFORMATION
  Report Type: Spontaneous
  Country: US (occurrence: US)
  Receive Date: 20181226
  Receipt Date: 20201124
  Transmission Date: 20210113
  Serious: No
  Sender: FDA-Public Use
  Company Number: US-PFIZER INC-2018528370

PATIENT
  Age: 59 Year
  Sex: Female
  Weight: 81 kg

DRUGS (2)
  1. LYRICA [Suspect]
     Active Substance: PREGABALIN
     Indication: NEUROPATHY PERIPHERAL
     Dosage: 100 MG, DAILY
  2. LYRICA [Suspect]
     Active Substance: PREGABALIN
     Dosage: 50 MG, 1X/DAY [AT NIGHT]
     Route: 048
     Dates: start: 201809

REACTIONS (5)
  - Intentional product use issue [Unknown]
  - Sensitivity to weather change [Unknown]
  - Drug ineffective [Unknown]
  - Somnolence [Recovered/Resolved]
  - Gait inability [Unknown]

NARRATIVE: CASE EVENT DATE: 201806
